FAERS Safety Report 22298662 (Version 6)
Quarter: 2024Q4

REPORT INFORMATION
  Report Type: Spontaneous
  Country: ES (occurrence: ES)
  Receive Date: 20230509
  Receipt Date: 20241204
  Transmission Date: 20250114
  Serious: Yes (Hospitalization, Other)
  Sender: MYLAN
  Company Number: ES-GLAXOSMITHKLINE-ESCH2023HLN018256

PATIENT
  Age: 26 Year
  Sex: Male

DRUGS (4)
  1. IBUPROFEN [Suspect]
     Active Substance: IBUPROFEN
     Indication: Product used for unknown indication
     Dosage: UNK
     Route: 065
  2. AMOXICILLIN\CLAVULANIC ACID [Suspect]
     Active Substance: AMOXICILLIN\CLAVULANIC ACID
     Indication: Tooth infection
     Dosage: UNK
     Route: 048
     Dates: start: 20190303, end: 20190303
  3. ACETAMINOPHEN [Suspect]
     Active Substance: ACETAMINOPHEN
     Indication: Toothache
     Dosage: UNK
     Route: 048
     Dates: start: 20190303, end: 20190307
  4. METAMIZOLE [Suspect]
     Active Substance: METAMIZOLE
     Indication: Toothache
     Dosage: UNK
     Route: 048
     Dates: start: 20190303, end: 20190303

REACTIONS (9)
  - Erythema [Recovered/Resolved]
  - Disease recurrence [Recovered/Resolved]
  - Pyrexia [Recovered/Resolved]
  - Multiple organ dysfunction syndrome [Unknown]
  - Acute generalised exanthematous pustulosis [Recovered/Resolved]
  - Renal impairment [Recovered/Resolved]
  - Pustule [Recovered/Resolved]
  - Leukocytosis [Recovered/Resolved]
  - Neutrophilia [Recovered/Resolved]

NARRATIVE: CASE EVENT DATE: 20090101
